FAERS Safety Report 14360670 (Version 4)
Quarter: 2018Q2

REPORT INFORMATION
  Report Type: Report from Study
  Country: FR (occurrence: FR)
  Receive Date: 20180106
  Receipt Date: 20180618
  Transmission Date: 20180711
  Serious: Yes (Hospitalization, Other)
  Sender: FDA-Public Use
  Company Number: FR-MYLANLABS-2018M1001145

PATIENT
  Age: 49 Year
  Sex: Female
  Weight: 66 kg

DRUGS (7)
  1. 5-FU                               /00098801/ [Suspect]
     Active Substance: FLUOROURACIL
     Indication: COLORECTAL CANCER METASTATIC
     Dosage: 4200 MG, 3RD CYCLE
     Route: 041
     Dates: end: 20160823
  2. IRINOTECAN [Suspect]
     Active Substance: IRINOTECAN
     Indication: OFF LABEL USE
  3. 5-FU                               /00098801/ [Suspect]
     Active Substance: FLUOROURACIL
     Dosage: 700 MG, 3RD CYCLE
     Route: 040
     Dates: end: 20160823
  4. IRINOTECAN [Suspect]
     Active Substance: IRINOTECAN
     Indication: COLORECTAL CANCER METASTATIC
     Dosage: 200 MG, 3RD CYCLE
     Route: 042
     Dates: end: 20160823
  5. BETADINE [Concomitant]
     Active Substance: POVIDONE-IODINE
     Indication: PRODUCT USED FOR UNKNOWN INDICATION
     Dosage: UNK
     Route: 065
  6. OXALIPLATIN. [Suspect]
     Active Substance: OXALIPLATIN
     Indication: COLORECTAL CANCER METASTATIC
     Dosage: 150 MG, 3RD CYCLE
     Route: 042
     Dates: end: 20160823
  7. AVASTIN                            /00848101/ [Suspect]
     Active Substance: SIMVASTATIN
     Indication: COLORECTAL CANCER METASTATIC
     Dosage: 340 MG, 2ND CYCLE
     Route: 042
     Dates: end: 20160823

REACTIONS (4)
  - Intestinal obstruction [Recovered/Resolved]
  - Ascites [Recovered/Resolved]
  - Off label use [Unknown]
  - Enterocutaneous fistula [Recovered/Resolved]

NARRATIVE: CASE EVENT DATE: 20160830
